FAERS Safety Report 13677606 (Version 1)
Quarter: 2017Q2

REPORT INFORMATION
  Report Type: Spontaneous
  Country: BR (occurrence: BR)
  Receive Date: 20170622
  Receipt Date: 20170622
  Transmission Date: 20170830
  Serious: Yes (Other)
  Sender: FDA-Public Use
  Company Number: BR-TORRENT-00004014

PATIENT
  Age: 64 Year
  Sex: Female
  Weight: 83 kg

DRUGS (6)
  1. AZUKON MR [Suspect]
     Active Substance: GLICLAZIDE
  2. ZETSIM 10/ 10 MG [Concomitant]
  3. ASPIRINA PREVENT [Concomitant]
     Active Substance: ASPIRIN
  4. METFORMIN [Concomitant]
     Active Substance: METFORMIN HYDROCHLORIDE
  5. GLIFAGE [Concomitant]
     Active Substance: METFORMIN HYDROCHLORIDE
  6. LOSARTAN POTASSIUM. [Suspect]
     Active Substance: LOSARTAN POTASSIUM

REACTIONS (2)
  - Drug ineffective [Unknown]
  - Hypertensive crisis [Recovered/Resolved]

NARRATIVE: CASE EVENT DATE: 20170530
